FAERS Safety Report 6211869-2 (Version None)
Quarter: 2009Q2

REPORT INFORMATION
  Report Type: 
  Country: None (occurrence: None)
  Receive Date: 20090602
  Receipt Date: 20090520
  Transmission Date: 20091009
  Serious: Yes (Hospitalization)
  Sender: FDA-Public Use
  Company Number: CA-MEDIMMUNE-MEDI-0008342

PATIENT
  Sex: Male
  Weight: 5.4 kg

DRUGS (4)
  1. SYNAGIS [Suspect]
     Indication: ANTIVIRAL PROPHYLAXIS
     Route: 030
     Dates: start: 20081215, end: 20090204
  2. SYNAGIS [Suspect]
     Route: 030
     Dates: start: 20081215
  3. SYNAGIS [Suspect]
     Route: 030
     Dates: start: 20090107
  4. RANITIDINE [Concomitant]
     Indication: GASTROOESOPHAGEAL REFLUX DISEASE
     Route: 048

REACTIONS (4)
  - APNOEA [None]
  - BRONCHIOLITIS [None]
  - COUGH [None]
  - NASAL CONGESTION [None]
